FAERS Safety Report 23618688 (Version 1)
Quarter: 2024Q1

REPORT INFORMATION
  Report Type: Spontaneous
  Country: US (occurrence: US)
  Receive Date: 20240311
  Receipt Date: 20240311
  Transmission Date: 20240410
  Serious: Yes (Other)
  Sender: FDA-Public Use
  Company Number: US-BAYER-2024A035321

PATIENT
  Age: 60 Year
  Sex: Male

DRUGS (1)
  1. GADOBUTROL [Suspect]
     Active Substance: GADOBUTROL
     Dosage: 5 ML, ONCE

REACTIONS (8)
  - Muscle spasms [None]
  - Throat tightness [None]
  - Feeling hot [None]
  - Burning sensation [None]
  - Eye swelling [None]
  - Eye pruritus [None]
  - Vision blurred [None]
  - Nausea [None]

NARRATIVE: CASE EVENT DATE: 20240127
